FAERS Safety Report 20681775 (Version 1)
Quarter: 2022Q2

REPORT INFORMATION
  Report Type: Report from Study
  Country: NA (occurrence: NA)
  Receive Date: 20220407
  Receipt Date: 20220407
  Transmission Date: 20220721
  Serious: Yes (Hospitalization, Other)
  Sender: FDA-Public Use
  Company Number: ZA-ABBVIE-21K-143-4116750-00

PATIENT
  Age: 39 Year
  Sex: Female

DRUGS (2)
  1. HUMIRA [Suspect]
     Active Substance: ADALIMUMAB
     Indication: Ankylosing spondylitis
     Route: 058
     Dates: start: 20190531, end: 20210527
  2. MORPHINE [Suspect]
     Active Substance: MORPHINE
     Indication: Product used for unknown indication
     Route: 065

REACTIONS (17)
  - Hysterectomy [Recovered/Resolved]
  - Thyroidectomy [Unknown]
  - Deep vein thrombosis [Unknown]
  - Gastric neoplasm [Recovered/Resolved]
  - Neoplasm malignant [Unknown]
  - Thrombosis [Unknown]
  - Heart rate decreased [Unknown]
  - Oxygen saturation decreased [Unknown]
  - Peripheral swelling [Unknown]
  - Feeling hot [Unknown]
  - Pain in extremity [Unknown]
  - Drug intolerance [Unknown]
  - Trismus [Unknown]
  - Abdominal pain upper [Unknown]
  - Peripheral swelling [Unknown]
  - Weight increased [Unknown]
  - Eye inflammation [Unknown]

NARRATIVE: CASE EVENT DATE: 20190101
